FAERS Safety Report 6970241-8 (Version None)
Quarter: 2010Q3

REPORT INFORMATION
  Report Type: 
  Country: None (occurrence: None)
  Receive Date: 20100908
  Receipt Date: 20100825
  Transmission Date: 20110219
  Serious: Yes (Other)
  Sender: FDA-Public Use
  Company Number: PHHY2010BR56713

PATIENT
  Sex: Male

DRUGS (5)
  1. EXFORGE [Suspect]
     Dosage: 320/5 MG
     Route: 048
  2. RASILEZ HCT [Suspect]
     Dosage: 320/12.5 MG
     Route: 048
  3. HIDRION [Concomitant]
  4. SUSTRATE [Concomitant]
     Dosage: UNK
  5. SIMVASTATIN [Concomitant]

REACTIONS (3)
  - CARDIAC DISORDER [None]
  - HYPERTENSION [None]
  - SPEECH DISORDER [None]
